FAERS Safety Report 12473990 (Version 1)
Quarter: 2016Q2

REPORT INFORMATION
  Report Type: Report from Study
  Country: US (occurrence: US)
  Receive Date: 20160616
  Receipt Date: 20160616
  Transmission Date: 20160815
  Serious: Yes (Hospitalization)
  Sender: FDA-Public Use
  Company Number: US-GILEAD-2016-0217956

PATIENT
  Age: 60 Year
  Sex: Male

DRUGS (1)
  1. LEDIPASVIR/SOFOSBUVIR [Suspect]
     Active Substance: LEDIPASVIR\SOFOSBUVIR
     Indication: HEPATITIS C
     Dosage: 1 DF, UNK
     Route: 048
     Dates: start: 201605

REACTIONS (9)
  - Rectal haemorrhage [Unknown]
  - Pyrexia [Unknown]
  - Decreased appetite [Unknown]
  - Headache [Unknown]
  - Malaise [Unknown]
  - Fatigue [Unknown]
  - Pain [Unknown]
  - Thirst [Unknown]
  - Vomiting [Unknown]

NARRATIVE: CASE EVENT DATE: 2016
